FAERS Safety Report 7499211-0 (Version None)
Quarter: 2011Q2

REPORT INFORMATION
  Report Type: 
  Country: None (occurrence: None)
  Receive Date: 20110516
  Receipt Date: 20110429
  Transmission Date: 20111010
  Serious: Yes (Other)
  Sender: FDA-Public Use
  Company Number: 023891

PATIENT
  Sex: Male
  Weight: 4.1 kg

DRUGS (5)
  1. KEPPRA [Suspect]
     Indication: EPILEPSY
     Dosage: 1000 MG, PRIOR TO CONCEPTION, TRANSPLACENTAL; 1500 MG TRANSPLACENTAL; 2000 MG TRANSPLACENTAL
     Route: 064
     Dates: start: 20101005
  2. KEPPRA [Suspect]
     Indication: EPILEPSY
     Dosage: 1000 MG, PRIOR TO CONCEPTION, TRANSPLACENTAL; 1500 MG TRANSPLACENTAL; 2000 MG TRANSPLACENTAL
     Route: 064
     Dates: start: 20110105, end: 20110204
  3. FOLIC ACID [Concomitant]
  4. PRENATAL VITAMINS [Concomitant]
  5. FLUZONE [Concomitant]

REACTIONS (2)
  - MATERNAL DRUGS AFFECTING FOETUS [None]
  - CONGENITAL HYDRONEPHROSIS [None]
